FAERS Safety Report 8024956-3 (Version None)
Quarter: 2012Q1

REPORT INFORMATION
  Report Type: 
  Country: None (occurrence: None)
  Receive Date: 20120103
  Receipt Date: 20111222
  Transmission Date: 20120608
  Serious: Yes (Hospitalization, Other)
  Sender: FDA-Public Use
  Company Number: AUR-APU-2011-01193

PATIENT
  Age: 72 Year
  Sex: Female

DRUGS (6)
  1. NITRAZEPAM [Concomitant]
  2. MIRTAZAPINE [Suspect]
     Indication: DEPRESSION
     Dosage: 15 MG (15 MG, 1 IN 1 D), ORAL
     Route: 048
     Dates: start: 20101222, end: 20110301
  3. BEZAFIBRATE (BEZAFIBRATE) [Concomitant]
  4. LEVOTHYROXINE SODIUM [Concomitant]
  5. INFUMORPH [Concomitant]
  6. DIAZEPAM [Concomitant]

REACTIONS (4)
  - TEMPORAL ARTERITIS [None]
  - MALAISE [None]
  - FOREIGN BODY SENSATION IN EYES [None]
  - HEADACHE [None]
